FAERS Safety Report 4526449-4 (Version None)
Quarter: 2004Q4

REPORT INFORMATION
  Report Type: 
  Country: None (occurrence: None)
  Receive Date: 20041214
  Receipt Date: 20041206
  Transmission Date: 20050328
  Serious: Yes (Hospitalization)
  Sender: FDA-Public Use
  Company Number: JP-MERCK-0412USA01286

PATIENT

DRUGS (1)
  1. ALDOMET-M [Suspect]
     Route: 048

REACTIONS (3)
  - OVERDOSE [None]
  - SHOCK [None]
  - SUICIDE ATTEMPT [None]
